FAERS Safety Report 6084669-4 (Version None)
Quarter: 2009Q1

REPORT INFORMATION
  Report Type: 
  Country: None (occurrence: None)
  Receive Date: 20090217
  Receipt Date: 20090212
  Transmission Date: 20090719
  Serious: Yes (Hospitalization)
  Sender: FDA-Public Use
  Company Number: LTI2009A00048

PATIENT
  Age: 60 Year
  Sex: Male

DRUGS (7)
  1. OGAST                    (LANSOPRAZOLE) (CAPSULES) [Suspect]
     Indication: GASTROOESOPHAGEAL REFLUX DISEASE
     Dosage: 30 MG (30 MG, 1 - IN 1 D)
     Route: 048
  2. EZETROL             (EZETIMIBE) (EZETIMIBE) (TABLETS) [Suspect]
     Indication: HYPERCHOLESTEROLAEMIA
     Dosage: 10 MG (10 MG, 1 IN 1 D)
     Dates: start: 20080922, end: 20081008
  3. PLAVIX [Concomitant]
  4. TANAKAN              (GINGKO BILOBA EXTRACT) [Concomitant]
  5. RISORDAN (TABLETS) [Concomitant]
  6. TAREG (VALSARTAN) (TABLETS) [Concomitant]
  7. NITROGLYCERIN [Concomitant]

REACTIONS (3)
  - CHEILITIS [None]
  - CUTANEOUS LUPUS ERYTHEMATOSUS [None]
  - HYPERCHOLESTEROLAEMIA [None]
